FAERS Safety Report 7915272-6 (Version None)
Quarter: 2011Q4

REPORT INFORMATION
  Report Type: 
  Country: None (occurrence: None)
  Receive Date: 20111115
  Receipt Date: 20110804
  Transmission Date: 20120403
  Serious: No
  Sender: FDA-Public Use
  Company Number: US-BAYER-2011-071554

PATIENT

DRUGS (2)
  1. ALEVE (CAPLET) [Suspect]
     Dosage: 2 DF, ONCE
     Route: 048
  2. ALCOHOL [ETHANOL] [Interacting]

REACTIONS (1)
  - DRUG INEFFECTIVE [None]
